FAERS Safety Report 4917191-6 (Version None)
Quarter: 2006Q1

REPORT INFORMATION
  Report Type: 
  Country: None (occurrence: None)
  Receive Date: 20060221
  Receipt Date: 20060209
  Transmission Date: 20060701
  Serious: Yes (Hospitalization)
  Sender: FDA-Public Use
  Company Number: 2006PK00344

PATIENT
  Age: 61 Year
  Sex: Female

DRUGS (10)
  1. SEROQUEL [Suspect]
     Route: 048
     Dates: start: 20051020, end: 20051025
  2. SEROQUEL [Suspect]
     Route: 048
     Dates: start: 20051124, end: 20051124
  3. CALCIUM SANDOZ [Concomitant]
     Route: 048
     Dates: start: 20051114
  4. MYDOCALM [Concomitant]
     Route: 048
     Dates: start: 20051114
  5. PANTOZOL [Concomitant]
     Route: 048
     Dates: start: 20051111
  6. VALIUM [Concomitant]
     Route: 048
     Dates: start: 20051002, end: 20051003
  7. VALIUM [Concomitant]
     Route: 048
     Dates: start: 20051004, end: 20051007
  8. VALIUM [Concomitant]
     Route: 048
     Dates: start: 20051008, end: 20051027
  9. VALIUM [Concomitant]
     Route: 048
     Dates: start: 20051028, end: 20051103
  10. PONSTAN [Concomitant]
     Route: 048
     Dates: start: 20051002

REACTIONS (12)
  - ASTHENIA [None]
  - DIZZINESS [None]
  - FACIAL PAIN [None]
  - HEADACHE [None]
  - HYPOACUSIS [None]
  - MASTOID DISORDER [None]
  - PAIN [None]
  - PAIN IN EXTREMITY [None]
  - SEDATION [None]
  - SENSORY DISTURBANCE [None]
  - SHOULDER PAIN [None]
  - VISION BLURRED [None]
